FAERS Safety Report 8341332-4 (Version None)
Quarter: 2012Q2

REPORT INFORMATION
  Report Type: 
  Country: None (occurrence: None)
  Receive Date: 20120507
  Receipt Date: 20120430
  Transmission Date: 20120825
  Serious: Yes (Death)
  Sender: FDA-Public Use
  Company Number: CN-JNJFOC-20120503950

PATIENT

DRUGS (16)
  1. PREDNISONE [Suspect]
     Indication: LYMPHOMA
     Route: 065
  2. DOXORUBICIN HCL [Suspect]
     Route: 042
  3. CYCLOPHOSPHAMIDE [Suspect]
     Indication: LYMPHOMA
     Route: 065
  4. ETOPOSIDE [Suspect]
     Route: 065
  5. PROCARBAZINE HYDROCHLORIDE [Suspect]
     Indication: LYMPHOMA
     Route: 065
  6. DOXORUBICIN HCL [Suspect]
     Indication: LYMPHOMA
     Route: 042
  7. CYCLOPHOSPHAMIDE [Suspect]
     Route: 065
  8. VINCRISTINE [Suspect]
     Indication: LYMPHOMA
     Route: 065
  9. ETOPOSIDE [Suspect]
     Indication: LYMPHOMA
     Route: 065
  10. BLEOMYCIN SULFATE [Suspect]
     Indication: LYMPHOMA
     Route: 065
  11. VINCRISTINE [Suspect]
     Route: 065
  12. RITUXIMAB [Suspect]
     Route: 065
  13. PREDNISONE [Suspect]
     Route: 065
  14. BLEOMYCIN SULFATE [Suspect]
     Route: 065
  15. PROCARBAZINE HYDROCHLORIDE [Suspect]
     Route: 065
  16. RITUXIMAB [Suspect]
     Indication: LYMPHOMA
     Route: 065

REACTIONS (2)
  - LUNG INFECTION [None]
  - LEUKOPENIA [None]
